FAERS Safety Report 18711010 (Version 2)
Quarter: 2021Q3

REPORT INFORMATION
  Report Type: Spontaneous
  Country: US (occurrence: US)
  Receive Date: 20210107
  Receipt Date: 20210824
  Transmission Date: 20211014
  Serious: Yes (Other)
  Sender: FDA-Public Use
  Company Number: US-ASTRAZENECA-2020SF76091

PATIENT
  Age: 24230 Day
  Sex: Female
  Weight: 107.3 kg

DRUGS (35)
  1. METOPROLOL. [Concomitant]
     Active Substance: METOPROLOL
  2. TAMSULOSIN [Concomitant]
     Active Substance: TAMSULOSIN
  3. DIGOXIN. [Concomitant]
     Active Substance: DIGOXIN
  4. ASPIRIN. [Concomitant]
     Active Substance: ASPIRIN
  5. PRILOSEC [Suspect]
     Active Substance: OMEPRAZOLE MAGNESIUM
     Indication: GASTROOESOPHAGEAL REFLUX DISEASE
     Route: 048
     Dates: start: 200001, end: 201812
  6. METHYLPREDNISOLONE. [Concomitant]
     Active Substance: METHYLPREDNISOLONE
  7. HYDRALAZINE [Concomitant]
     Active Substance: HYDRALAZINE HYDROCHLORIDE
  8. LUMIGAN [Concomitant]
     Active Substance: BIMATOPROST
  9. TYLENOL [Concomitant]
     Active Substance: ACETAMINOPHEN
  10. PRILOSEC OTC [Suspect]
     Active Substance: OMEPRAZOLE MAGNESIUM
     Indication: GASTROOESOPHAGEAL REFLUX DISEASE
     Route: 048
     Dates: start: 200001, end: 201812
  11. HYDROCODONE [Concomitant]
     Active Substance: HYDROCODONE
  12. HALODOL [Concomitant]
     Active Substance: HALOPERIDOL
  13. OSELTAMIVIR [Concomitant]
     Active Substance: OSELTAMIVIR
  14. PENTOXYFYLLINE [Concomitant]
     Active Substance: PENTOXIFYLLINE
  15. BENZONATATE. [Concomitant]
     Active Substance: BENZONATATE
  16. PREDNISOLONE. [Concomitant]
     Active Substance: PREDNISOLONE
  17. PREDNISONE. [Concomitant]
     Active Substance: PREDNISONE
  18. NITROFURANTOIN. [Concomitant]
     Active Substance: NITROFURANTOIN
  19. TORSEMIDE. [Concomitant]
     Active Substance: TORSEMIDE
  20. AMLODIPINE [Concomitant]
     Active Substance: AMLODIPINE BESYLATE
  21. ISOSORBIDE. [Concomitant]
     Active Substance: ISOSORBIDE
  22. SPIRONOLACTONE. [Concomitant]
     Active Substance: SPIRONOLACTONE
  23. CARVEDILOL. [Concomitant]
     Active Substance: CARVEDILOL
  24. RANEXA [Concomitant]
     Active Substance: RANOLAZINE
  25. VERPAMIL [Concomitant]
     Active Substance: VERAPAMIL HYDROCHLORIDE
  26. PRILOSEC [Suspect]
     Active Substance: OMEPRAZOLE MAGNESIUM
     Indication: GASTROOESOPHAGEAL REFLUX DISEASE
     Dosage: GENERIC
     Route: 065
     Dates: start: 2014
  27. ATORVASTATIN [Concomitant]
     Active Substance: ATORVASTATIN
  28. TAMSULOSIN [Concomitant]
     Active Substance: TAMSULOSIN
  29. LEVEMIR [Concomitant]
     Active Substance: INSULIN DETEMIR
  30. PRILOSEC [Suspect]
     Active Substance: OMEPRAZOLE MAGNESIUM
     Indication: GASTROOESOPHAGEAL REFLUX DISEASE
     Route: 048
     Dates: start: 2000, end: 2018
  31. PRILOSEC OTC [Suspect]
     Active Substance: OMEPRAZOLE MAGNESIUM
     Indication: GASTROOESOPHAGEAL REFLUX DISEASE
     Route: 048
     Dates: start: 2000, end: 2018
  32. PROTONIX [Suspect]
     Active Substance: PANTOPRAZOLE SODIUM
     Indication: GASTROOESOPHAGEAL REFLUX DISEASE
     Route: 065
     Dates: start: 2018
  33. CALCIUM ACETATE. [Concomitant]
     Active Substance: CALCIUM ACETATE
  34. FLUCONAZOLE. [Concomitant]
     Active Substance: FLUCONAZOLE
  35. AMITRIPTYLLINE [Concomitant]
     Active Substance: AMITRIPTYLINE

REACTIONS (4)
  - Chronic kidney disease [Not Recovered/Not Resolved]
  - Acute kidney injury [Not Recovered/Not Resolved]
  - Nephrogenic anaemia [Unknown]
  - End stage renal disease [Not Recovered/Not Resolved]

NARRATIVE: CASE EVENT DATE: 20180222
